FAERS Safety Report 7494315-0 (Version None)
Quarter: 2011Q2

REPORT INFORMATION
  Report Type: 
  Country: None (occurrence: None)
  Receive Date: 20110520
  Receipt Date: 20110516
  Transmission Date: 20111010
  Serious: Yes (Death, Hospitalization, Other)
  Sender: FDA-Public Use
  Company Number: PHHY2011PT41612

PATIENT
  Age: 17 Year
  Sex: Male

DRUGS (4)
  1. FLUCONAZOLE [Suspect]
     Indication: ANTIFUNGAL PROPHYLAXIS
     Dosage: 400 MG, QD
  2. METHOTREXATE [Suspect]
     Indication: PROPHYLAXIS AGAINST GRAFT VERSUS HOST DISEASE
  3. PREDNISONE [Suspect]
     Dosage: 1 MG/KG, BID
  4. TACROLIMUS [Suspect]
     Indication: PROPHYLAXIS AGAINST GRAFT VERSUS HOST DISEASE

REACTIONS (28)
  - RENAL FAILURE ACUTE [None]
  - AMAUROSIS [None]
  - GENERAL PHYSICAL HEALTH DETERIORATION [None]
  - SPUTUM ABNORMAL [None]
  - OPTIC NERVE DISORDER [None]
  - ACUTE RESPIRATORY FAILURE [None]
  - PULMONARY CAVITATION [None]
  - DYSPNOEA [None]
  - HEADACHE [None]
  - DYSARTHRIA [None]
  - ENGRAFTMENT SYNDROME [None]
  - SINUSITIS FUNGAL [None]
  - ACUTE TONSILLITIS [None]
  - LEUKOPENIA [None]
  - PNEUMONIA FUNGAL [None]
  - HEMIPARESIS [None]
  - HAEMOPTYSIS [None]
  - PERIORBITAL OEDEMA [None]
  - PYREXIA [None]
  - ODYNOPHAGIA [None]
  - COUGH [None]
  - GRAFT VERSUS HOST DISEASE [None]
  - FEBRILE NEUTROPENIA [None]
  - ENCEPHALITIS FUNGAL [None]
  - DEPRESSED LEVEL OF CONSCIOUSNESS [None]
  - SINUSITIS [None]
  - EXOPHTHALMOS [None]
  - EAR PAIN [None]
